FAERS Safety Report 4469064-3 (Version None)
Quarter: 2004Q4

REPORT INFORMATION
  Report Type: 
  Country: None (occurrence: None)
  Receive Date: 20041001
  Receipt Date: 20040916
  Transmission Date: 20050328
  Serious: Yes (Hospitalization)
  Sender: FDA-Public Use
  Company Number: S04-FRA-04693-01

PATIENT
  Age: 46 Year
  Sex: Female

DRUGS (4)
  1. CITALOPRAM HYDROBROMIDE [Suspect]
     Dates: start: 20030215, end: 20040729
  2. LEVONORGESTREL AND ETHINYL ESTRADIOL [Suspect]
     Dates: start: 19940115, end: 20040729
  3. LYSANXIA (PRAZEPAM) [Concomitant]
  4. AOTAL (ACAMPROSATE) [Concomitant]

REACTIONS (5)
  - HALITOSIS [None]
  - HEPATITIS [None]
  - HYPERBILIRUBINAEMIA [None]
  - SKIN ODOUR ABNORMAL [None]
  - ZIEVE SYNDROME [None]
